FAERS Safety Report 6263518-5 (Version None)
Quarter: 2009Q3

REPORT INFORMATION
  Report Type: 
  Country: None (occurrence: None)
  Receive Date: 20090710
  Receipt Date: 20090330
  Transmission Date: 20100115
  Serious: No
  Sender: FDA-Public Use
  Company Number: A0776196A

PATIENT
  Age: 58 Year
  Sex: Female

DRUGS (8)
  1. TYKERB [Suspect]
     Indication: BREAST CANCER
     Dosage: 1250MG PER DAY
     Route: 048
     Dates: start: 20090223, end: 20090228
  2. XELODA [Suspect]
     Indication: BREAST CANCER
     Route: 048
     Dates: start: 20090316, end: 20090326
  3. EFFEXOR [Concomitant]
  4. TEMAZEPAM [Concomitant]
  5. COENZYME Q10 [Concomitant]
  6. HERCEPTIN [Concomitant]
  7. ANACIN [Concomitant]
  8. ADVIL [Concomitant]

REACTIONS (3)
  - ARTHRALGIA [None]
  - DIARRHOEA [None]
  - PAIN IN EXTREMITY [None]
